FAERS Safety Report 4721263-9 (Version None)
Quarter: 2005Q3

REPORT INFORMATION
  Report Type: 
  Country: None (occurrence: None)
  Receive Date: 20050720
  Receipt Date: 20050707
  Transmission Date: 20060218
  Serious: No
  Sender: FDA-Public Use
  Company Number: 2005FR-00114

PATIENT

DRUGS (1)
  1. RANITIDINE [Suspect]
     Indication: PREMEDICATION
     Dosage: 300 MG, TRANPLACE
     Route: 064

REACTIONS (6)
  - APGAR SCORE LOW [None]
  - CAESAREAN SECTION [None]
  - COMPLICATION OF DELIVERY [None]
  - DELAYED DELIVERY [None]
  - DRUG EXPOSURE DURING PREGNANCY [None]
  - HYPOVENTILATION NEONATAL [None]
